FAERS Safety Report 15437067 (Version 4)
Quarter: 2019Q1

REPORT INFORMATION
  Report Type: Report from Study
  Country: US (occurrence: US)
  Receive Date: 20180927
  Receipt Date: 20190115
  Transmission Date: 20190417
  Serious: Yes (Other)
  Sender: FDA-Public Use
  Company Number: US-CLOVIS ONCOLOGY-CLO-2018-001080

PATIENT
  Age: 73 Year
  Sex: Female

DRUGS (3)
  1. RUBRACA [Suspect]
     Active Substance: RUCAPARIB CAMSYLATE
     Dosage: 300 MG, BID
     Route: 048
     Dates: start: 20181031, end: 201811
  2. RUBRACA [Suspect]
     Active Substance: RUCAPARIB CAMSYLATE
     Dosage: UNK
     Dates: start: 201808, end: 20181204
  3. RUBRACA [Suspect]
     Active Substance: RUCAPARIB CAMSYLATE
     Indication: OVARIAN CANCER
     Dosage: 600 MG, BID
     Route: 048
     Dates: start: 20180803, end: 20181030

REACTIONS (12)
  - Renal function test abnormal [Unknown]
  - Nausea [Not Recovered/Not Resolved]
  - Product dose omission [Unknown]
  - Dysgeusia [Not Recovered/Not Resolved]
  - Abdominal neoplasm [Unknown]
  - Weight decreased [Unknown]
  - Fatigue [Not Recovered/Not Resolved]
  - Decreased appetite [Not Recovered/Not Resolved]
  - Constipation [Not Recovered/Not Resolved]
  - Lung neoplasm malignant [Unknown]
  - Anaemia [Unknown]
  - Carbohydrate antigen 125 increased [Unknown]

NARRATIVE: CASE EVENT DATE: 2018
